FAERS Safety Report 16853328 (Version 2)
Quarter: 2019Q4

REPORT INFORMATION
  Report Type: Spontaneous
  Country: FR (occurrence: FR)
  Receive Date: 20190925
  Receipt Date: 20191002
  Transmission Date: 20200122
  Serious: Yes (Other)
  Sender: FDA-Public Use
  Company Number: FR-ANIPHARMA-2019-FR-000204

PATIENT
  Age: 70 Year
  Sex: Female

DRUGS (2)
  1. MODUCREN [Concomitant]
     Active Substance: AMILORIDE HYDROCHLORIDE\HYDROCHLOROTHIAZIDE\TIMOLOL MALEATE
     Dosage: 1 DF DAILY
     Route: 065
  2. ARIMIDEX [Suspect]
     Active Substance: ANASTROZOLE
     Indication: BREAST CANCER
     Dosage: 1 MG DAILY
     Route: 048
     Dates: start: 201605

REACTIONS (2)
  - Hepatocellular injury [Unknown]
  - Hepatic siderosis [Unknown]

NARRATIVE: CASE EVENT DATE: 201803
